FAERS Safety Report 8068023-1 (Version None)
Quarter: 2012Q1

REPORT INFORMATION
  Report Type: 
  Country: None (occurrence: None)
  Receive Date: 20120124
  Receipt Date: 20110909
  Transmission Date: 20120608
  Serious: No
  Sender: FDA-Public Use
  Company Number: US-AMGEN-USASP2011046272

PATIENT
  Age: 66 Year
  Sex: Female

DRUGS (5)
  1. PROLIA [Suspect]
     Indication: OSTEOPOROSIS POSTMENOPAUSAL
     Dosage: 60 MG, Q6MO
     Dates: start: 20110101
  2. TAMOXIFEN CITRATE [Concomitant]
  3. MULTI-VITAMINS [Concomitant]
  4. FISH OIL [Concomitant]
  5. CALCIUM + D3 [Concomitant]

REACTIONS (2)
  - DYSPHAGIA [None]
  - CYSTITIS [None]
